FAERS Safety Report 22608338 (Version 1)
Quarter: 2023Q2

REPORT INFORMATION
  Report Type: Other
  Country: US (occurrence: None)
  Receive Date: 20230616
  Receipt Date: 20230616
  Transmission Date: 20230721
  Serious: No
  Sender: FDA-Public Use
  Company Number: US-ROCHE-3361475

PATIENT
  Age: 40 Year
  Sex: Female
  Weight: 72.575 kg

DRUGS (11)
  1. OCREVUS [Suspect]
     Active Substance: OCRELIZUMAB
     Indication: Multiple sclerosis
     Route: 042
  2. VITAMIN D2 [Concomitant]
     Active Substance: ERGOCALCIFEROL
  3. VOLTAREN [Concomitant]
     Active Substance: DICLOFENAC SODIUM
  4. BACLOFEN [Concomitant]
     Active Substance: BACLOFEN
  5. FERROUS SULFATE [Concomitant]
     Active Substance: FERROUS SULFATE
  6. FOLIC ACID [Concomitant]
     Active Substance: FOLIC ACID
  7. LIDOCAINE [Concomitant]
     Active Substance: LIDOCAINE
  8. PANTOPRAZOLE [Concomitant]
     Active Substance: PANTOPRAZOLE
  9. RIFAMPIN [Concomitant]
     Active Substance: RIFAMPIN
  10. CYCLOBENZAPRINE [Concomitant]
     Active Substance: CYCLOBENZAPRINE
  11. DIMETHYL FUMARATE [Concomitant]
     Active Substance: DIMETHYL FUMARATE

REACTIONS (3)
  - Headache [Unknown]
  - Fatigue [Unknown]
  - Pulmonary tuberculosis [Unknown]
